FAERS Safety Report 8132452-8 (Version None)
Quarter: 2012Q1

REPORT INFORMATION
  Report Type: 
  Country: None (occurrence: None)
  Receive Date: 20120207
  Receipt Date: 20120131
  Transmission Date: 20120608
  Serious: Yes (Hospitalization, Other)
  Sender: FDA-Public Use
  Company Number: 2012010114

PATIENT
  Age: 42 Year
  Sex: Male

DRUGS (1)
  1. MESALAMINE [Suspect]
     Indication: COLITIS ULCERATIVE

REACTIONS (4)
  - DYSPNOEA [None]
  - LUNG CONSOLIDATION [None]
  - CREPITATIONS [None]
  - RESTRICTIVE PULMONARY DISEASE [None]
